FAERS Safety Report 11175032 (Version 1)
Quarter: 2015Q2

REPORT INFORMATION
  Report Type: Spontaneous
  Country: US (occurrence: None)
  Receive Date: 20150608
  Receipt Date: 20150608
  Transmission Date: 20150821
  Serious: No
  Sender: FDA-Public Use
  Company Number: None

PATIENT
  Age: 35 Year
  Sex: Female
  Weight: 89.81 kg

DRUGS (1)
  1. BENZONATATE. [Suspect]
     Active Substance: BENZONATATE
     Indication: UPPER RESPIRATORY TRACT INFECTION
     Dosage: 1PILL THREE TIMES DAILY TAKEN BY MOUTH
     Route: 048
     Dates: start: 20150604, end: 20150604

REACTIONS (6)
  - Insomnia [None]
  - Photopsia [None]
  - Movement disorder [None]
  - Speech disorder [None]
  - Nasal congestion [None]
  - Tremor [None]

NARRATIVE: CASE EVENT DATE: 20150605
